FAERS Safety Report 9649704 (Version 1)
Quarter: 2013Q4

REPORT INFORMATION
  Report Type: Spontaneous
  Country: GB (occurrence: GB)
  Receive Date: 20131028
  Receipt Date: 20131028
  Transmission Date: 20140711
  Serious: Yes (Other)
  Sender: FDA-Public Use
  Company Number: PHHY2013GB118396

PATIENT
  Sex: Female

DRUGS (4)
  1. INDAPAMIDE [Suspect]
  2. ARICEPT [Suspect]
     Indication: DEMENTIA ALZHEIMER^S TYPE
     Dosage: 10 MG, QD
     Dates: start: 2003
  3. SIMVASTATIN [Concomitant]
  4. ASPIRIN [Concomitant]
     Dosage: 75 MG, QD

REACTIONS (2)
  - Loss of consciousness [Unknown]
  - Heart rate decreased [Unknown]
